FAERS Safety Report 6416780-X (Version None)
Quarter: 2009Q4

REPORT INFORMATION
  Report Type: 
  Country: None (occurrence: None)
  Receive Date: 20091027
  Receipt Date: 20091015
  Transmission Date: 20100525
  Serious: Yes (Other)
  Sender: FDA-Public Use
  Company Number: ES-GILEAD-2009-0024888

PATIENT
  Sex: Female

DRUGS (2)
  1. TRUVADA [Suspect]
     Indication: HIV INFECTION
  2. TRUVADA [Suspect]
     Indication: HEPATITIS B

REACTIONS (3)
  - ASTHENIA [None]
  - FEELING ABNORMAL [None]
  - HYPOPHOSPHATAEMIA [None]
